FAERS Safety Report 8524317-4 (Version None)
Quarter: 2012Q3

REPORT INFORMATION
  Report Type: 
  Country: None (occurrence: None)
  Receive Date: 20120720
  Receipt Date: 20120716
  Transmission Date: 20120928
  Serious: Yes (Other)
  Sender: FDA-Public Use
  Company Number: US-PFIZER INC-2012130893

PATIENT
  Sex: Female
  Weight: 105.13 kg

DRUGS (20)
  1. ATIVAN [Concomitant]
     Indication: ANXIETY
     Dosage: 1 MG, 2X/DAY AS NEEDED
     Route: 048
  2. CALCIUM [Concomitant]
     Dosage: 1200 MG, 1X/DAY
     Route: 048
  3. VIVELLE-DOT [Concomitant]
     Dosage: 0.05 MG/24 HR
  4. LANSOPRAZOLE [Concomitant]
     Dosage: ONE PILL TWICE A DAY
     Route: 048
  5. PREVACID [Concomitant]
     Dosage: 30 MG, 1X/DAY
     Route: 048
  6. VENTOLIN [Concomitant]
     Dosage: 90 MCG/ACTUATION (1-2 PUFFS EVERY 4 HOURS AS NEEDED)
     Route: 055
  7. EFFEXOR XR [Suspect]
     Indication: DEPRESSION
     Dosage: 75 MG, 1X/DAY
     Route: 048
     Dates: start: 20100601, end: 20120501
  8. CLOTRIMAZOLE [Concomitant]
     Dosage: USE TWICE DAILY AS NEEDED
  9. BETAMETHASONE [Concomitant]
     Dosage: USE TWICE DAILY AS NEEDED
  10. ACETYLSALICYLIC ACID [Concomitant]
     Dosage: 81 MG, 1X/DAY
  11. LEVSIN [Concomitant]
     Dosage: 0.125 MG, 4X/DAY AS NEEDED
     Route: 048
  12. ZANAFLEX [Concomitant]
     Dosage: 4 MG, 1X/DAY
  13. ACIPHEX [Concomitant]
     Dosage: 20 MG, 2X/DAY (ONE PILL BY MOUTH)
     Route: 048
  14. ALBUTEROL SULFATE [Concomitant]
     Dosage: 0.083 %, AS NEEDED (2.5 MG/3 ML) 1 VIAL EVERY 6 HOURS
  15. VITAMIN D [Concomitant]
     Dosage: 50000 IU, WEEKLY
  16. NYSTATIN [Concomitant]
     Dosage: 100,000 UNIT/G POWDER APPLY TO AFFECTED AREA TWICE A DAY
  17. FLUOCINONIDE [Concomitant]
     Dosage: 0.1 %, UNK
  18. PRISTIQ [Suspect]
     Indication: DEPRESSION
     Dosage: 50 MG, 1X/DAY
     Route: 048
     Dates: start: 20120516
  19. BENZOYL PEROXIDE [Concomitant]
     Dosage: 5 %, 2X/DAY (LIQUID, USE 2 PART WASH TO 1 PART WATER AS DIRECTED)
  20. TRAMADOL [Concomitant]
     Indication: PAIN
     Dosage: 50 MG EVERY 6 HOURS AS NEEDED
     Route: 048

REACTIONS (7)
  - HEADACHE [None]
  - DEPRESSION [None]
  - THINKING ABNORMAL [None]
  - HYPOVITAMINOSIS [None]
  - DRUG INEFFECTIVE [None]
  - PSORIATIC ARTHROPATHY [None]
  - DYSPEPSIA [None]
